FAERS Safety Report 25677274 (Version 1)
Quarter: 2025Q3

REPORT INFORMATION
  Report Type: Spontaneous
  Country: US (occurrence: US)
  Receive Date: 20250813
  Receipt Date: 20250813
  Transmission Date: 20251020
  Serious: No
  Sender: SANOFI AVENTIS
  Company Number: US-SA-2025SA236940

PATIENT
  Age: 69 Year
  Sex: Female

DRUGS (7)
  1. DUPIXENT [Suspect]
     Active Substance: DUPILUMAB
     Indication: Asthma
     Dosage: 1 DF, QOW
     Route: 058
     Dates: start: 20250715, end: 2025
  2. CLONAZEPAM [Concomitant]
     Active Substance: CLONAZEPAM
  3. FASENRA [Concomitant]
     Active Substance: BENRALIZUMAB
  4. MONTELUKAST SODIUM [Concomitant]
     Active Substance: MONTELUKAST SODIUM
  5. OMEPRAZOLE [Concomitant]
     Active Substance: OMEPRAZOLE
  6. SERTRALINE [Concomitant]
     Active Substance: SERTRALINE HYDROCHLORIDE
  7. TRELEGY ELLIPTA [Concomitant]
     Active Substance: FLUTICASONE FUROATE\UMECLIDINIUM BROMIDE\VILANTEROL TRIFENATATE

REACTIONS (4)
  - Eosinophil count increased [Unknown]
  - Rhinorrhoea [Unknown]
  - Sneezing [Unknown]
  - Arthralgia [Unknown]

NARRATIVE: CASE EVENT DATE: 20250101
